FAERS Safety Report 25307814 (Version 1)
Quarter: 2025Q2

REPORT INFORMATION
  Report Type: Spontaneous
  Country: US (occurrence: US)
  Receive Date: 20250513
  Receipt Date: 20250513
  Transmission Date: 20250716
  Serious: No
  Sender: TRAVERE THERAPEUTICS
  Company Number: US-TRAVERE-2025TVT00605

PATIENT
  Age: 65 Year
  Sex: Male

DRUGS (1)
  1. FILSPARI [Suspect]
     Active Substance: SPARSENTAN
     Indication: Product used for unknown indication
     Route: 048

REACTIONS (3)
  - Hypertension [Unknown]
  - Headache [Unknown]
  - Cognitive disorder [Unknown]
